FAERS Safety Report 24224980 (Version 3)
Quarter: 2024Q3

REPORT INFORMATION
  Report Type: Spontaneous
  Country: DE (occurrence: DE)
  Receive Date: 20240820
  Receipt Date: 20240901
  Transmission Date: 20241017
  Serious: Yes (Life-Threatening)
  Sender: JOHNSON AND JOHNSON
  Company Number: DE-JNJFOC-20240838584

PATIENT
  Age: 66 Year
  Sex: Female

DRUGS (7)
  1. SPRAVATO [Suspect]
     Active Substance: ESKETAMINE
     Indication: Depression
     Dates: start: 202209
  2. TRANYLCYPROMINE [Concomitant]
     Active Substance: TRANYLCYPROMINE
     Indication: Depression
     Dosage: LONG TERM THERAPY
     Route: 048
  3. LITHIUM [Concomitant]
     Active Substance: LITHIUM
     Indication: Depression
     Dosage: LITHIUM PROLONGED-RELEASE, LONG TERM THERAPY
     Route: 048
  4. QUETIAPINE [Concomitant]
     Active Substance: QUETIAPINE
     Indication: Depression
     Dosage: LONG-TERM THERAPY
     Route: 048
  5. LEVOTHYROXINE [Concomitant]
     Active Substance: LEVOTHYROXINE\LEVOTHYROXINE SODIUM
     Indication: Hypothyroidism
     Dosage: LONG-TERM THERAPY
     Route: 048
  6. POLYETHYLENE GLYCOLS [Concomitant]
     Active Substance: POLYETHYLENE GLYCOLS
     Indication: Constipation
     Dosage: LONG-TERM THERAPY, 2 TABLETS
     Route: 048
  7. BECLOMETHASONE DIPROPIONATE [Concomitant]
     Active Substance: BECLOMETHASONE DIPROPIONATE
     Indication: Asthma
     Dosage: LONG-TERM THERAPY, 1 INHALATIVE PUFF
     Route: 045

REACTIONS (2)
  - Prinzmetal angina [Recovering/Resolving]
  - Blood pressure increased [Unknown]

NARRATIVE: CASE EVENT DATE: 20240701
